FAERS Safety Report 18478903 (Version 1)
Quarter: 2020Q4

REPORT INFORMATION
  Report Type: Spontaneous
  Country: US (occurrence: US)
  Receive Date: 20201109
  Receipt Date: 20201109
  Transmission Date: 20210114
  Serious: Yes (Other)
  Sender: FDA-Public Use
  Company Number: US-SPECGX-T202002180

PATIENT
  Age: 63 Year
  Sex: Male

DRUGS (15)
  1. METHADONE [Suspect]
     Active Substance: METHADONE HYDROCHLORIDE
     Indication: PAIN
     Dosage: 40 MILLIGRAM, QID
     Route: 065
  2. HYDROMORPHONE [Suspect]
     Active Substance: HYDROMORPHONE
     Indication: PAIN
     Dosage: 16 MILLIGRAM
     Route: 042
  3. FENTANYL. [Suspect]
     Active Substance: FENTANYL
     Indication: PAIN
     Dosage: 200 MICROGRAM
     Route: 065
  4. FENTANYL. [Suspect]
     Active Substance: FENTANYL
     Dosage: 100 MICROGRAM (EVERY 15 MINUTES BOLUSES)
     Route: 065
  5. DILAUDID [Suspect]
     Active Substance: HYDROMORPHONE HYDROCHLORIDE
     Indication: BREAKTHROUGH PAIN
     Dosage: 12 MILLIGRAM, EVERY HOUR
     Route: 042
  6. DILAUDID [Suspect]
     Active Substance: HYDROMORPHONE HYDROCHLORIDE
     Indication: RENAL COLIC
  7. METHADONE [Suspect]
     Active Substance: METHADONE HYDROCHLORIDE
     Indication: BREAKTHROUGH PAIN
     Dosage: 25 MILLIGRAM, Q3H
     Route: 042
  8. OXYMORPHONE [Suspect]
     Active Substance: OXYMORPHONE
     Indication: BREAKTHROUGH PAIN
     Dosage: 3 MILLIGRAM, PRN (EVERY 3 HOURS)
     Route: 042
  9. HYDROMORPHONE [Suspect]
     Active Substance: HYDROMORPHONE
     Indication: PAIN
     Dosage: 48 MILLIGRAM, EVERY HOUR
     Route: 065
  10. FENTANYL. [Suspect]
     Active Substance: FENTANYL
     Dosage: 600 MICROGRAM, EVERY HOUR (100 MCG EVERY 15 MINUTES)
     Route: 065
  11. PROPOFOL. [Suspect]
     Active Substance: PROPOFOL
     Indication: PAIN
     Dosage: UNK, (150 MCG/KG/MIN) (TOTAL OF 430 MG)
     Route: 065
  12. DILAUDID [Suspect]
     Active Substance: HYDROMORPHONE HYDROCHLORIDE
     Indication: PAIN
     Dosage: 24 MILLIGRAM, Q3H
     Route: 065
  13. OCTREOTIDE. [Suspect]
     Active Substance: OCTREOTIDE
     Indication: CANCER PAIN
     Dosage: 100 MICROGRAM, BID
     Route: 058
  14. FENTANYL. [Suspect]
     Active Substance: FENTANYL
     Dosage: 60 MICROGRAM (EVERY SIX MINUTES)
     Route: 065
  15. FENTANYL. [Suspect]
     Active Substance: FENTANYL
     Dosage: 1100 MICROGRAM, EVERY HOUR (100 MCG EVERY 15 MINUTES)
     Route: 065

REACTIONS (2)
  - Hyperaesthesia [Unknown]
  - Drug ineffective [Unknown]
